FAERS Safety Report 9781288 (Version 2)
Quarter: 2013Q4

REPORT INFORMATION
  Report Type: Spontaneous
  Country: US (occurrence: US)
  Receive Date: 20131224
  Receipt Date: 20131224
  Transmission Date: 20140711
  Serious: No
  Sender: FDA-Public Use
  Company Number: US-GILEAD-2010-0030626

PATIENT
  Sex: Female

DRUGS (11)
  1. CAYSTON [Suspect]
     Indication: CYSTIC FIBROSIS
     Dates: start: 20100429
  2. CREON 24 [Concomitant]
  3. PULMOZYME [Concomitant]
  4. SYMBICORT [Concomitant]
  5. PREVACID [Concomitant]
  6. VERAMYST [Concomitant]
  7. XOPENEX HFA [Concomitant]
  8. HYPERTONIC SALINE [Concomitant]
  9. SOURCE CF CHEWABLES [Concomitant]
  10. OSCAL [Concomitant]
  11. ZITHROMAX [Concomitant]

REACTIONS (1)
  - Tendonitis [Unknown]
